FAERS Safety Report 10517515 (Version 1)
Quarter: 2014Q4

REPORT INFORMATION
  Report Type: Spontaneous
  Country: FR (occurrence: FR)
  Receive Date: 20141014
  Receipt Date: 20141014
  Transmission Date: 20150528
  Serious: Yes (Other)
  Sender: FDA-Public Use
  Company Number: FR-ASTRAZENECA-2014SE75938

PATIENT
  Age: 1006 Month
  Sex: Female

DRUGS (2)
  1. BRILIQUE [Suspect]
     Active Substance: TICAGRELOR
     Indication: STENT PLACEMENT
     Route: 048
     Dates: start: 201406
  2. BRILIQUE [Suspect]
     Active Substance: TICAGRELOR
     Indication: ACUTE CORONARY SYNDROME
     Route: 048
     Dates: start: 201406

REACTIONS (4)
  - Acute kidney injury [Not Recovered/Not Resolved]
  - Dehydration [Unknown]
  - Fluid intake reduced [Unknown]
  - Hypophagia [Unknown]

NARRATIVE: CASE EVENT DATE: 201407
